FAERS Safety Report 4570574-9 (Version None)
Quarter: 2005Q1

REPORT INFORMATION
  Report Type: 
  Country: None (occurrence: None)
  Receive Date: 20050202
  Receipt Date: 20050202
  Transmission Date: 20050727
  Serious: Yes (Hospitalization)
  Sender: FDA-Public Use
  Company Number: None

PATIENT
  Age: 5 Year
  Sex: Male
  Weight: 20.4119 kg

DRUGS (1)
  1. MULTIVITA-BETS WITH FLOURIDE   FLOURIDE .25MG   AMIDE [Suspect]
     Dosage: 1   DAY   ORAL
     Route: 048
     Dates: start: 20050127, end: 20050127

REACTIONS (3)
  - FALL [None]
  - LOSS OF CONSCIOUSNESS [None]
  - RASH [None]
